FAERS Safety Report 7099617-8 (Version None)
Quarter: 2010Q4

REPORT INFORMATION
  Report Type: 
  Country: None (occurrence: None)
  Receive Date: 20101104
  Receipt Date: 20101025
  Transmission Date: 20110411
  Serious: Yes (Death, Life-Threatening, Hospitalization, Other)
  Sender: FDA-Public Use
  Company Number: 2010AC000082

PATIENT
  Age: 78 Year
  Sex: Female
  Weight: 113.3993 kg

DRUGS (24)
  1. DIGOXIN [Suspect]
     Indication: ATRIAL FIBRILLATION
     Dosage: (0.125 MG; 1X; IV), (0.125 MG; X2; IV)
     Route: 042
     Dates: start: 20080115, end: 20080115
  2. DIGOXIN [Suspect]
     Indication: ATRIAL FIBRILLATION
     Dosage: (0.125 MG; 1X; IV), (0.125 MG; X2; IV)
     Route: 042
     Dates: start: 20080116, end: 20080116
  3. DIGOXIN [Suspect]
     Dosage: 0.125 MG; QD; PO
     Route: 048
     Dates: start: 20080116, end: 20080121
  4. LISINOPRIL [Concomitant]
  5. SYNTHROID [Concomitant]
  6. ZETIA [Concomitant]
  7. RITALIN [Concomitant]
  8. LIPITOR [Concomitant]
  9. MAGNESIUM [Concomitant]
  10. CARDIZEM [Concomitant]
  11. ASPIRIN [Concomitant]
  12. PROVIGIL [Concomitant]
  13. LASIX [Concomitant]
  14. NITROGLYCERIN [Concomitant]
  15. MORPHINE [Concomitant]
  16. LOVENOX [Concomitant]
  17. RED BLOOD CELLS [Concomitant]
  18. NORMAL SALINE [Concomitant]
  19. DOBUTAMINE [Concomitant]
  20. DILAUDID [Concomitant]
  21. ATROPINE [Concomitant]
  22. LEVOPHED [Concomitant]
  23. EPINEPHRINE [Concomitant]
  24. OXYGEN [Concomitant]

REACTIONS (18)
  - ACUTE CORONARY SYNDROME [None]
  - CARDIO-RESPIRATORY ARREST [None]
  - CARDIOACTIVE DRUG LEVEL DECREASED [None]
  - CORONARY ARTERY OCCLUSION [None]
  - DEVICE FAILURE [None]
  - ECONOMIC PROBLEM [None]
  - GASTROINTESTINAL NECROSIS [None]
  - HYPERKALAEMIA [None]
  - HYPOPERFUSION [None]
  - HYPOTENSION [None]
  - LACTIC ACIDOSIS [None]
  - METABOLIC ACIDOSIS [None]
  - MULTIPLE INJURIES [None]
  - MYOCARDIAL INFARCTION [None]
  - PAIN IN EXTREMITY [None]
  - POST PROCEDURAL HAEMATOMA [None]
  - RENAL FAILURE ACUTE [None]
  - RHABDOMYOLYSIS [None]
